FAERS Safety Report 6959382-9 (Version None)
Quarter: 2010Q3

REPORT INFORMATION
  Report Type: 
  Country: None (occurrence: None)
  Receive Date: 20100831
  Receipt Date: 20100831
  Transmission Date: 20110219
  Serious: Yes (Hospitalization)
  Sender: FDA-Public Use
  Company Number: None

PATIENT
  Sex: Female
  Weight: 84.6 kg

DRUGS (2)
  1. SORAFENIB 200MG PO BID [Suspect]
     Indication: BREAST CANCER METASTATIC
     Dosage: SORAFENIB 200MG PO BID
     Route: 048
     Dates: start: 20100818, end: 20100828
  2. VINORELBINE TARTRATE [Suspect]
     Indication: BREAST CANCER METASTATIC
     Dosage: VINORELBINE 20MG/M2
     Dates: start: 20100818, end: 20100829

REACTIONS (2)
  - HEADACHE [None]
  - PYELONEPHRITIS [None]
